FAERS Safety Report 7643850-0 (Version None)
Quarter: 2011Q3

REPORT INFORMATION
  Report Type: 
  Country: None (occurrence: None)
  Receive Date: 20110729
  Receipt Date: 20100730
  Transmission Date: 20111222
  Serious: No
  Sender: FDA-Public Use
  Company Number: US-GLAXOSMITHKLINE-A0873221A

PATIENT
  Age: 39 Year
  Sex: Female

DRUGS (3)
  1. ANALGESIC [Suspect]
     Indication: HEADACHE
  2. NO CONCURRENT MEDICATION [Concomitant]
  3. IMITREX [Suspect]
     Indication: MIGRAINE
     Route: 048

REACTIONS (2)
  - NAUSEA [None]
  - DRUG INEFFECTIVE [None]
